FAERS Safety Report 9487004 (Version 1)
Quarter: 2013Q3

REPORT INFORMATION
  Report Type: Report from Study
  Country: JP (occurrence: JP)
  Receive Date: 20130829
  Receipt Date: 20130829
  Transmission Date: 20140515
  Serious: Yes (Hospitalization)
  Sender: FDA-Public Use
  Company Number: JP-VIIV HEALTHCARE LIMITED-B0917494A

PATIENT
  Age: 36 Year
  Sex: Male

DRUGS (25)
  1. LEXIVA [Suspect]
     Indication: HIV INFECTION
     Dosage: 700MG TWICE PER DAY
     Route: 048
     Dates: start: 20070410, end: 20090407
  2. LEXIVA [Suspect]
     Indication: HIV INFECTION
     Route: 048
     Dates: start: 20090408, end: 20090512
  3. LEXIVA [Suspect]
     Indication: HIV INFECTION
     Dosage: 700MG TWICE PER DAY
     Route: 048
     Dates: start: 20090513
  4. NORVIR [Suspect]
     Indication: HIV INFECTION
     Route: 048
     Dates: start: 20070410, end: 20090407
  5. NORVIR [Suspect]
     Indication: HIV INFECTION
     Route: 048
     Dates: start: 20090408, end: 20090512
  6. NORVIR [Suspect]
     Indication: HIV INFECTION
     Route: 048
     Dates: start: 20090513, end: 20120229
  7. NORVIR [Suspect]
     Indication: HIV INFECTION
     Route: 048
     Dates: start: 20120301
  8. TRUVADA [Suspect]
     Indication: HIV INFECTION
     Route: 048
     Dates: start: 20070410
  9. REBETOL [Concomitant]
     Indication: CHRONIC HEPATITIS C
     Dosage: 2IUAX TWICE PER DAY
     Route: 048
     Dates: start: 20020423, end: 20090708
  10. REBETOL [Concomitant]
     Indication: CHRONIC HEPATITIS C
     Dosage: 2IUAX TWICE PER DAY
     Route: 048
     Dates: start: 20090511
  11. GLAKAY [Concomitant]
     Indication: CHRONIC HEPATITIS C
     Dosage: 1IUAX THREE TIMES PER DAY
     Route: 048
     Dates: start: 20040906
  12. URSO [Concomitant]
     Indication: CHRONIC HEPATITIS C
     Dosage: 4IUAX THREE TIMES PER DAY
     Route: 048
     Dates: start: 20041105, end: 20070521
  13. URSO [Concomitant]
     Indication: CHRONIC HEPATITIS C
     Dosage: 3IUAX THREE TIMES PER DAY
     Route: 048
     Dates: start: 20070522
  14. AMINOLEBAN EN [Concomitant]
     Indication: CHRONIC HEPATITIS C
     Dosage: 1IUAX PER DAY
     Route: 048
     Dates: start: 20071029, end: 20080106
  15. AMINOLEBAN EN [Concomitant]
     Indication: CHRONIC HEPATITIS C
     Dosage: 1IUAX PER DAY
     Route: 048
     Dates: start: 20090108, end: 20090825
  16. KOGENATE [Concomitant]
     Indication: FACTOR VIII DEFICIENCY
     Dosage: 2000IU TWO TIMES PER WEEK
     Route: 042
  17. PARIET [Concomitant]
     Indication: GASTRITIS
     Dosage: 1IUAX PER DAY
     Route: 048
     Dates: start: 20080408
  18. LOXONIN [Concomitant]
     Indication: HAEMOPHILIC ARTHROPATHY
     Dosage: 1IUAX THREE TIMES PER DAY
     Route: 048
     Dates: start: 200204
  19. LIVACT [Concomitant]
     Indication: CHRONIC HEPATITIS C
     Dosage: 1IUAX THREE TIMES PER DAY
     Route: 048
     Dates: start: 20111024, end: 20121213
  20. TRAMCET [Concomitant]
     Indication: ROAD TRAFFIC ACCIDENT
     Dosage: 1IUAX THREE TIMES PER DAY
     Route: 048
     Dates: start: 20130308, end: 20130314
  21. NOVAMIN [Concomitant]
     Indication: PROPHYLAXIS
     Dosage: 1IUAX THREE TIMES PER DAY
     Route: 048
     Dates: start: 20130308, end: 20130314
  22. AMIPHARGEN [Concomitant]
     Indication: CHRONIC HEPATITIS C
     Dosage: 40ML TWO TIMES PER WEEK
     Route: 042
     Dates: start: 20110422, end: 20120410
  23. AMIPHARGEN [Concomitant]
     Indication: CHRONIC HEPATITIS C
     Dosage: 60ML TWO TIMES PER WEEK
     Route: 042
     Dates: start: 20120413
  24. NEOPHAGEN [Concomitant]
     Indication: CHRONIC HEPATITIS C
     Dosage: 100ML TWO TIMES PER WEEK
     Route: 042
     Dates: start: 20060626, end: 20110418
  25. CRAVIT [Concomitant]
     Indication: NEOPLASM SKIN
     Dosage: 1IUAX PER DAY
     Route: 048
     Dates: start: 20120608, end: 20120617

REACTIONS (8)
  - Haemophilic arthropathy [Recovering/Resolving]
  - Cholelithiasis [Not Recovered/Not Resolved]
  - Gastritis [Not Recovered/Not Resolved]
  - Duodenitis [Not Recovered/Not Resolved]
  - Hyperbilirubinaemia [Not Recovered/Not Resolved]
  - Subcutaneous abscess [Recovered/Resolved]
  - Rib fracture [Recovering/Resolving]
  - Road traffic accident [Recovering/Resolving]
